FAERS Safety Report 12644561 (Version 1)
Quarter: 2016Q3

REPORT INFORMATION
  Report Type: Spontaneous
  Country: US (occurrence: US)
  Receive Date: 20160811
  Receipt Date: 20160811
  Transmission Date: 20161109
  Serious: Yes (Other)
  Sender: FDA-Public Use
  Company Number: US-BAYER-2016-151074

PATIENT
  Age: 18 Year
  Sex: Female

DRUGS (1)
  1. MIRENA [Suspect]
     Active Substance: LEVONORGESTREL
     Indication: CONTRACEPTION
     Dosage: 20 MCG/24HR, CONT
     Route: 015
     Dates: start: 201505

REACTIONS (9)
  - Genital discharge [None]
  - Vaginal haemorrhage [None]
  - Intentional product use issue [None]
  - Fatigue [None]
  - Procedural pain [None]
  - Abdominal pain lower [None]
  - Nausea [None]
  - Pregnancy with contraceptive device [None]
  - Vomiting [None]

NARRATIVE: CASE EVENT DATE: 2016
